FAERS Safety Report 9315261 (Version 1)
Quarter: 2013Q2

REPORT INFORMATION
  Report Type: Spontaneous
  Country: US (occurrence: US)
  Receive Date: 20130529
  Receipt Date: 20130529
  Transmission Date: 20140414
  Serious: No
  Sender: FDA-Public Use
  Company Number: US-PFIZER INC-2013160525

PATIENT
  Age: 69 Year
  Sex: Female
  Weight: 88.44 kg

DRUGS (13)
  1. LIPITOR [Suspect]
     Indication: CARDIAC DISORDER
     Dosage: UNK
     Dates: start: 201103
  2. ATORVASTATIN [Suspect]
     Indication: CARDIAC DISORDER
     Dosage: 40 MG, 1X/DAY
  3. PLAVIX [Concomitant]
     Indication: CARDIAC DISORDER
     Dosage: 75 MG, DAILY
  4. ALTACE [Concomitant]
     Indication: CARDIAC DISORDER
     Dosage: 2.5 MG, DAILY
  5. COREG [Concomitant]
     Indication: CARDIAC DISORDER
     Dosage: 6.25 MG, 2X/DAY
  6. ASPIRIN [Concomitant]
     Indication: CARDIAC DISORDER
     Dosage: 325 MG, UNK
  7. COENZYME Q10 [Concomitant]
     Indication: CARDIAC DISORDER
     Dosage: 200 MG, DAILY
  8. LASIX [Concomitant]
     Dosage: 20 MG, DAILY
  9. BONIVA [Concomitant]
     Dosage: 150 MG, MONTHLY
  10. RANITIDINE [Concomitant]
     Indication: GASTROOESOPHAGEAL REFLUX DISEASE
     Dosage: 150 MG, 2X/DAY
  11. CALCIUM [Concomitant]
     Dosage: 600 MG, DAILY
  12. FISH OIL [Concomitant]
     Dosage: UNK
  13. VITAMIN D3 [Concomitant]
     Dosage: 1000 MG, DAILY

REACTIONS (1)
  - Glucose tolerance impaired [Unknown]
